FAERS Safety Report 7349556-X (Version None)
Quarter: 2011Q1

REPORT INFORMATION
  Report Type: 
  Country: None (occurrence: None)
  Receive Date: 20110314
  Receipt Date: 20110214
  Transmission Date: 20110831
  Serious: No
  Sender: FDA-Public Use
  Company Number: US-B.I. PHARMACEUTICALS,INC./RIDGEFIELD-2011-BP-05685BP

PATIENT
  Sex: Female

DRUGS (10)
  1. SYNTHROID [Concomitant]
     Indication: HYPOTHYROIDISM
     Dosage: 0.1 MG
     Dates: start: 20030101
  2. LIPITOR [Concomitant]
     Indication: BLOOD CHOLESTEROL INCREASED
     Dosage: 5 MG
  3. COQ10 [Concomitant]
     Indication: SUPPLEMENTATION THERAPY
     Dosage: 50 MG
  4. EVISTA [Concomitant]
     Indication: OSTEOPOROSIS
     Dosage: 60 MG
  5. ALBUTEROL SO4 [Concomitant]
     Indication: WHEEZING
     Dosage: 2 MG
  6. FUROSEMIDE [Concomitant]
     Indication: DIURETIC THERAPY
     Dosage: 20 MG
  7. PRADAXA [Suspect]
     Indication: ATRIAL FIBRILLATION
     Dosage: 300 MG
     Route: 048
     Dates: start: 20110114
  8. MAGNESIUM [Concomitant]
     Indication: SUPPLEMENTATION THERAPY
     Dosage: 125 MG
  9. LISINOPRIL [Concomitant]
     Indication: HYPERTENSION
     Dosage: 40 MG
  10. OSCAL [Concomitant]
     Indication: SUPPLEMENTATION THERAPY

REACTIONS (3)
  - DYSPEPSIA [None]
  - OROPHARYNGEAL DISCOMFORT [None]
  - CHEST DISCOMFORT [None]
